FAERS Safety Report 10236042 (Version 1)
Quarter: 2014Q2

REPORT INFORMATION
  Report Type: Spontaneous
  Country: US (occurrence: US)
  Receive Date: 20140613
  Receipt Date: 20140613
  Transmission Date: 20141212
  Serious: Yes (Hospitalization, Other)
  Sender: FDA-Public Use
  Company Number: US-FRI-1000068022

PATIENT
  Sex: Male

DRUGS (1)
  1. FETZIMA [Suspect]

REACTIONS (1)
  - Cardiac failure [Unknown]
